FAERS Safety Report 15330554 (Version 1)
Quarter: 2018Q3

REPORT INFORMATION
  Report Type: Report from Study
  Country: None (occurrence: US)
  Receive Date: 20180829
  Receipt Date: 20180829
  Transmission Date: 20181010
  Serious: Yes (Other)
  Sender: FDA-Public Use
  Company Number: US-ABBVIE-17K-163-2201269-00

PATIENT
  Age: 58 Year
  Sex: Female

DRUGS (1)
  1. HUMIRA [Suspect]
     Active Substance: ADALIMUMAB
     Indication: CROHN^S DISEASE
     Route: 058
     Dates: start: 20150718

REACTIONS (4)
  - Lymphadenitis [Unknown]
  - Pain [Recovering/Resolving]
  - Ulcerative keratitis [Recovered/Resolved]
  - Acrochordon [Unknown]

NARRATIVE: CASE EVENT DATE: 20170927
